FAERS Safety Report 5404201-5 (Version None)
Quarter: 2007Q3

REPORT INFORMATION
  Report Type: 
  Country: None (occurrence: None)
  Receive Date: 20070802
  Receipt Date: 20070723
  Transmission Date: 20080115
  Serious: Yes (Hospitalization, Other)
  Sender: FDA-Public Use
  Company Number: JP-ROCHE-505384

PATIENT
  Age: 59 Year
  Sex: Female
  Weight: 64 kg

DRUGS (8)
  1. PEGASYS [Suspect]
     Route: 058
     Dates: start: 20060608, end: 20070502
  2. NORVASC [Concomitant]
     Dosage: ON 16 JAN 2007, A DOSAGE OF 5 MG WAS APLLIED, ONCE DAILY. THE NEXT DAY, THE DOSAGE WAS DECREASED TO+
     Route: 048
     Dates: start: 20070116
  3. BISOPROLOL FUMARATE [Concomitant]
     Route: 048
     Dates: start: 20061213
  4. BIO-THREE [Concomitant]
     Route: 048
     Dates: start: 20070427, end: 20070510
  5. FAMOTIDINE [Concomitant]
     Route: 048
     Dates: start: 20070427, end: 20070510
  6. UNSPECIFIED MEDICATION [Concomitant]
     Dosage: REPORTED AS STOMACH MEDICINE.
     Dates: start: 20070510
  7. ANTIBIOTIC NOS [Concomitant]
     Dates: start: 20070510
  8. CIPROFLOXACIN [Concomitant]
     Route: 048
     Dates: start: 20070510

REACTIONS (8)
  - ABDOMINAL PAIN UPPER [None]
  - COUGH [None]
  - DIARRHOEA [None]
  - HEPATIC STEATOSIS [None]
  - HYPERPLASTIC CHOLECYSTOPATHY [None]
  - OEDEMA [None]
  - PYREXIA [None]
  - REFLUX OESOPHAGITIS [None]
